FAERS Safety Report 7541349-3 (Version None)
Quarter: 2011Q2

REPORT INFORMATION
  Report Type: 
  Country: None (occurrence: None)
  Receive Date: 20110612
  Receipt Date: 20110609
  Transmission Date: 20111010
  Serious: Yes (Hospitalization)
  Sender: FDA-Public Use
  Company Number: DE-BRISTOL-MYERS SQUIBB COMPANY-15703002

PATIENT
  Age: 70 Year
  Sex: Male
  Weight: 76 kg

DRUGS (14)
  1. ASPIRIN [Concomitant]
     Indication: HYPERTENSION
     Dosage: 1 DF: 100 UNIT NOS
  2. SPIRIVA [Concomitant]
  3. METOCLOPRAMIDE [Concomitant]
  4. BERODUAL [Concomitant]
  5. SIMVASTATIN [Concomitant]
  6. PANTOPRAZOLE [Concomitant]
  7. SYMBICORT [Concomitant]
  8. NEBIVOLOL HCL [Concomitant]
  9. ESCITALOPRAM [Concomitant]
  10. ONDANSETRON [Concomitant]
  11. CARBOPLATIN [Suspect]
     Indication: NON-SMALL CELL LUNG CANCER
     Dosage: 1DF=5AUC,CYCLE 1DAY 15 CHEMOTHERAPY,C5
     Route: 042
     Dates: start: 20110420
  12. GEMCITABINE HCL [Suspect]
     Indication: NON-SMALL CELL LUNG CANCER
     Dosage: CYCLE 1DAY 15 CHEMOTHERAPY
     Route: 042
     Dates: start: 20110420
  13. CETUXIMAB [Suspect]
     Indication: NON-SMALL CELL LUNG CANCER
     Dosage: CYCLE 1DAY 15 CHEMOTHERAPY,250MG/M2
     Route: 042
     Dates: start: 20110420
  14. ACETYLCYSTEINE [Concomitant]
     Dosage: 1 DF: 600  UNIT NOS

REACTIONS (1)
  - DUODENAL ULCER [None]
